FAERS Safety Report 6645827-0 (Version None)
Quarter: 2010Q1

REPORT INFORMATION
  Report Type: 
  Country: None (occurrence: None)
  Receive Date: 20100318
  Receipt Date: 20100318
  Transmission Date: 20100710
  Serious: No
  Sender: FDA-Public Use
  Company Number: None

PATIENT
  Age: 56 Year
  Sex: Male
  Weight: 104.3273 kg

DRUGS (1)
  1. OXYCONTIN [Suspect]
     Indication: SURGERY
     Dosage: 2 TABLETS EVERY 6HRS PO
     Route: 048
     Dates: start: 20090322, end: 20090323

REACTIONS (3)
  - ANXIETY [None]
  - FEELING ABNORMAL [None]
  - SUICIDAL IDEATION [None]
